FAERS Safety Report 20311701 (Version 1)
Quarter: 2022Q1

REPORT INFORMATION
  Report Type: Other
  Country: PT (occurrence: PT)
  Receive Date: 20220108
  Receipt Date: 20220108
  Transmission Date: 20220423
  Serious: Yes (Life-Threatening)
  Sender: FDA-Public Use
  Company Number: PT-CELLTRION HEALTHCARE HUNGARY KFT-2021PT017806

PATIENT

DRUGS (3)
  1. RITUXIMAB [Suspect]
     Active Substance: RITUXIMAB
     Indication: Myopathy
     Dosage: STARTED ONE WEEK LATER THE MYCOPHENOLATE MOFETIL WAS GIVEN
     Route: 065
  2. MYCOPHENOLATE MOFETIL [Concomitant]
     Active Substance: MYCOPHENOLATE MOFETIL
     Dosage: 1000 MG OF 12/12H
  3. METHYLPREDNISOLONE [Concomitant]
     Active Substance: METHYLPREDNISOLONE
     Dosage: 1000 MG, FOR THREE DAYS

REACTIONS (4)
  - Dysphagia [Unknown]
  - Condition aggravated [Unknown]
  - Respiratory failure [Unknown]
  - Off label use [Unknown]
